FAERS Safety Report 9685363 (Version 3)
Quarter: 2014Q1

REPORT INFORMATION
  Report Type: Report from Study
  Country: AU (occurrence: AU)
  Receive Date: 20131113
  Receipt Date: 20140128
  Transmission Date: 20141002
  Serious: Yes (Hospitalization, Other)
  Sender: FDA-Public Use
  Company Number: PHHY2013AU128434

PATIENT
  Sex: Female

DRUGS (3)
  1. CLOZARIL [Suspect]
     Indication: SCHIZOPHRENIA
     Dosage: 300 MG, UNK
     Dates: start: 20110504
  2. CLOZARIL [Suspect]
     Indication: PSYCHOTIC DISORDER
     Dosage: 300 MG, (100 MG IN MORNING AND 200 MG AT NIGHT)
  3. ZUCLOPENTHIXOL DECANOATE [Concomitant]
     Dosage: 150 MG, BIW
     Route: 030

REACTIONS (2)
  - Schizophrenia, paranoid type [Unknown]
  - Psychotic disorder [Unknown]
